FAERS Safety Report 9458635 (Version 1)
Quarter: 2013Q3

REPORT INFORMATION
  Report Type: Spontaneous
  Country: CA (occurrence: CA)
  Receive Date: 20130814
  Receipt Date: 20130814
  Transmission Date: 20140515
  Serious: Yes (Other)
  Sender: FDA-Public Use
  Company Number: CA-GLAXOSMITHKLINE-A0993350A

PATIENT
  Age: 30 Year
  Sex: Female
  Weight: 57 kg

DRUGS (3)
  1. BENLYSTA [Suspect]
     Indication: SYSTEMIC LUPUS ERYTHEMATOSUS
     Dosage: 10MGK SEE DOSAGE TEXT
     Route: 042
     Dates: start: 20111026
  2. CELLCEPT [Concomitant]
  3. HYDROXYCHLOROQUINE [Concomitant]

REACTIONS (5)
  - Abortion induced [Unknown]
  - Vaginal haemorrhage [Unknown]
  - Premature separation of placenta [Unknown]
  - Weight increased [Unknown]
  - Exposure during pregnancy [Unknown]
